FAERS Safety Report 8845366 (Version 4)
Quarter: 2013Q1

REPORT INFORMATION
  Report Type: Spontaneous
  Country: US (occurrence: US)
  Receive Date: 20121017
  Receipt Date: 20130116
  Transmission Date: 20140127
  Serious: Yes (Hospitalization, Other)
  Sender: FDA-Public Use
  Company Number: US-009507513-1210USA005851

PATIENT
  Sex: 0

DRUGS (9)
  1. FOSAMAX [Suspect]
     Indication: OSTEOPOROSIS
     Dosage: 10 MG, QD
     Route: 048
     Dates: start: 19980506, end: 20001020
  2. FOSAMAX [Suspect]
     Dosage: 70 MG, QW
     Route: 048
     Dates: start: 20001020
  3. FOSAMAX [Suspect]
     Dosage: 5 MG, QAM
     Route: 048
     Dates: start: 19980520
  4. FOSAMAX [Suspect]
     Indication: OSTEOPOROSIS
     Dosage: 70 MG, UNK
     Route: 048
     Dates: start: 20080203, end: 20101225
  5. ALENDRONATE SODIUM [Suspect]
     Indication: OSTEOPOROSIS
     Dosage: 70 MG, QW
     Route: 048
  6. CALCIUM (UNSPECIFIED) (+) VITAMIN D (UNSPECIFIED) [Concomitant]
     Dosage: 600 MG, BID
     Dates: start: 1990, end: 2010
  7. HORMONES (UNSPECIFIED) [Concomitant]
     Dosage: UNK
     Dates: start: 1993, end: 1998
  8. AXID [Concomitant]
     Indication: PROPHYLAXIS
  9. DIOVAN [Concomitant]
     Indication: HYPERTENSION
     Dosage: UNK, QD
     Route: 048

REACTIONS (35)
  - Open reduction of fracture [Unknown]
  - Open reduction of fracture [Unknown]
  - Fall [Unknown]
  - Post procedural haematoma [Unknown]
  - Wound infection [Unknown]
  - Post procedural haemorrhage [Unknown]
  - Pancreatitis [Unknown]
  - Skin cancer [Unknown]
  - Renal failure acute [Unknown]
  - Hypercalcaemia [Unknown]
  - Chest pain [Unknown]
  - Renal failure chronic [Not Recovered/Not Resolved]
  - Femur fracture [Unknown]
  - Femur fracture [Unknown]
  - Low turnover osteopathy [Unknown]
  - Blood cholesterol increased [Unknown]
  - Anxiety [Unknown]
  - Osteoarthritis [Unknown]
  - Foot fracture [Unknown]
  - Diastolic dysfunction [Unknown]
  - Renal atrophy [Unknown]
  - Calcinosis [Unknown]
  - Spinal osteoarthritis [Unknown]
  - Scoliosis [Unknown]
  - Nephrolithiasis [Unknown]
  - Atelectasis [Unknown]
  - Pleural effusion [Unknown]
  - Gastrointestinal disorder [Unknown]
  - Diverticulum intestinal [Unknown]
  - Bladder dilatation [Unknown]
  - Malaise [Recovered/Resolved]
  - Gastrooesophageal reflux disease [Unknown]
  - Nausea [Unknown]
  - Abdominal pain upper [Unknown]
  - Arthralgia [Unknown]
